FAERS Safety Report 7192491-0 (Version None)
Quarter: 2010Q4

REPORT INFORMATION
  Report Type: 
  Country: None (occurrence: None)
  Receive Date: 20101223
  Receipt Date: 20100825
  Transmission Date: 20110411
  Serious: No
  Sender: FDA-Public Use
  Company Number: US-AMGEN-TCS433845

PATIENT

DRUGS (3)
  1. ENBREL [Suspect]
     Indication: RHEUMATOID ARTHRITIS
     Dosage: UNK UNK, UNK
     Dates: start: 20100220
  2. NAPROXEN SODIUM [Concomitant]
     Dosage: UNK UNK, Q12H
  3. ACETAMINOPHEN [Concomitant]
     Dosage: UNK UNK, Q12H

REACTIONS (1)
  - DRUG INEFFECTIVE [None]
